FAERS Safety Report 19025279 (Version 2)
Quarter: 2021Q2

REPORT INFORMATION
  Report Type: Report from Study
  Country: GB (occurrence: GB)
  Receive Date: 20210318
  Receipt Date: 20210618
  Transmission Date: 20210717
  Serious: Yes (Hospitalization, Other)
  Sender: FDA-Public Use
  Company Number: GB-TAKEDA-GB201600815

PATIENT
  Age: 10 Year
  Sex: Male

DRUGS (5)
  1. IDURSULFASE [Suspect]
     Active Substance: IDURSULFASE
     Dosage: 0.47 MILLIGRAM/KILOGRAM, 1/WEEK
     Route: 041
     Dates: start: 20070524, end: 200705
  2. IDURSULFASE [Suspect]
     Active Substance: IDURSULFASE
     Indication: MUCOPOLYSACCHARIDOSIS II
     Dosage: 0.41 MILLIGRAM/KILOGRAM, 1/WEEK
     Route: 041
     Dates: start: 20111117
  3. IDURSULFASE [Suspect]
     Active Substance: IDURSULFASE
     Dosage: 0.5 MILLIGRAM/KILOGRAM, 1/WEEK
     Route: 041
     Dates: start: 20070531
  4. IDURSULFASE [Suspect]
     Active Substance: IDURSULFASE
     Dosage: 0.48 MILLIGRAM/KILOGRAM, 1/WEEK
     Route: 041
     Dates: start: 20080707
  5. IDURSULFASE [Suspect]
     Active Substance: IDURSULFASE
     Dosage: 0.5 MILLIGRAM/KILOGRAM, 1/WEEK
     Route: 041
     Dates: start: 20070405

REACTIONS (13)
  - Malabsorption [Recovered/Resolved]
  - Agitation [Recovering/Resolving]
  - Irregular sleep phase [Recovering/Resolving]
  - Diarrhoea [Recovered/Resolved]
  - Thermal burn [Recovered/Resolved]
  - Abdominal distension [Recovered/Resolved]
  - Body temperature increased [Recovered/Resolved]
  - Emotional distress [Recovered/Resolved]
  - Dyskinesia [Recovering/Resolving]
  - Bacteraemia [Recovered/Resolved]
  - Pain [Recovered/Resolved]
  - Tongue movement disturbance [Recovering/Resolving]
  - Respiratory distress [Recovered/Resolved with Sequelae]

NARRATIVE: CASE EVENT DATE: 20110211
